FAERS Safety Report 9015125 (Version 1)
Quarter: 2013Q1

REPORT INFORMATION
  Report Type: Spontaneous
  Country: US (occurrence: None)
  Receive Date: 20130109
  Receipt Date: 20130109
  Transmission Date: 20140127
  Serious: Yes (Life-Threatening)
  Sender: FDA-Public Use
  Company Number: None

PATIENT
  Age: 22 Year
  Sex: Male

DRUGS (1)
  1. INDOCYANINE GREEN (ICG) [Suspect]
     Indication: X-RAY
     Route: 040
     Dates: start: 20120521

REACTIONS (2)
  - Pulseless electrical activity [None]
  - Contrast media reaction [None]
